FAERS Safety Report 4737147-6 (Version None)
Quarter: 2005Q3

REPORT INFORMATION
  Report Type: 
  Country: None (occurrence: None)
  Receive Date: 20050728
  Receipt Date: 20050525
  Transmission Date: 20060218
  Serious: No
  Sender: FDA-Public Use
  Company Number: 200513608US

PATIENT
  Age: 38 Year
  Sex: Female
  Weight: 79.5 kg

DRUGS (6)
  1. KETEK [Suspect]
     Indication: BRONCHITIS
     Dosage: 800 MG QD PO
     Route: 048
     Dates: start: 20050425, end: 20050425
  2. KETEK [Suspect]
     Indication: BRONCHITIS
     Dosage: 400 MG QD PO
     Route: 048
     Dates: start: 20050426, end: 20050427
  3. AMOXICILLIN [Concomitant]
  4. PARACETAMOL [Concomitant]
  5. CHLORPHENIRAMINE MALEATE [Concomitant]
  6. PSEUDOEPHEDRINE HYDROCHLORIDE (TYLENOL ALLERGY SINUS) [Concomitant]

REACTIONS (6)
  - ANOREXIA [None]
  - COLD SWEAT [None]
  - DIARRHOEA [None]
  - FATIGUE [None]
  - NAUSEA [None]
  - VOMITING [None]
